FAERS Safety Report 25700542 (Version 1)
Quarter: 2025Q3

REPORT INFORMATION
  Report Type: Spontaneous
  Country: CN (occurrence: CN)
  Receive Date: 20250819
  Receipt Date: 20250819
  Transmission Date: 20251021
  Serious: Yes (Other)
  Sender: PFIZER
  Company Number: CN-PFIZER INC-PV202500098970

PATIENT
  Age: 77 Year
  Sex: Male

DRUGS (3)
  1. FLUCONAZOLE [Interacting]
     Active Substance: FLUCONAZOLE
     Indication: Oesophageal candidiasis
     Route: 048
  2. FLUCONAZOLE [Interacting]
     Active Substance: FLUCONAZOLE
     Dosage: 200 MG, 1X/DAY (MAINTENANCE DOSE)
     Route: 048
  3. RIVAROXABAN [Interacting]
     Active Substance: RIVAROXABAN
     Indication: Atrial fibrillation
     Dosage: 15 MG, 1X/DAY
     Route: 048

REACTIONS (3)
  - Drug interaction [Recovered/Resolved]
  - Coagulopathy [Recovered/Resolved]
  - Haemothorax [Recovered/Resolved]
